FAERS Safety Report 9966188 (Version 2)
Quarter: 2014Q1

REPORT INFORMATION
  Report Type: Spontaneous
  Country: US (occurrence: US)
  Receive Date: 20140305
  Receipt Date: 20140305
  Transmission Date: 20141002
  Serious: No
  Sender: FDA-Public Use
  Company Number: US-ABBVIE-13P-163-1099432-00

PATIENT
  Age: 24 Year
  Sex: Female
  Weight: 45.85 kg

DRUGS (4)
  1. HUMIRA [Suspect]
     Indication: CROHN^S DISEASE
     Route: 058
     Dates: start: 201304
  2. ENTOCORT [Concomitant]
     Indication: CROHN^S DISEASE
  3. BENTYL [Concomitant]
     Indication: CROHN^S DISEASE
  4. FERROUS SULFATE [Concomitant]
     Indication: CROHN^S DISEASE

REACTIONS (9)
  - Dizziness [Not Recovered/Not Resolved]
  - Paraesthesia [Recovered/Resolved]
  - Hypoaesthesia [Recovered/Resolved]
  - Chest pain [Recovered/Resolved]
  - Pyrexia [Not Recovered/Not Resolved]
  - Abdominal pain [Recovering/Resolving]
  - Pain [Not Recovered/Not Resolved]
  - Lipase abnormal [Unknown]
  - Amylase abnormal [Unknown]
